FAERS Safety Report 6252493-5 (Version None)
Quarter: 2009Q2

REPORT INFORMATION
  Report Type: 
  Country: None (occurrence: None)
  Receive Date: 20090629
  Receipt Date: 20090629
  Transmission Date: 20091009
  Serious: Yes (Other)
  Sender: FDA-Public Use
  Company Number: None

PATIENT
  Sex: Female
  Weight: 52.8441 kg

DRUGS (1)
  1. RAMIPRIL [Suspect]
     Indication: HYPERTENSION
     Dosage: 10MG ONCE A DAY BY MOUTH
     Route: 048
     Dates: start: 20080716

REACTIONS (3)
  - DRUG INTOLERANCE [None]
  - EYE PAIN [None]
  - VISUAL IMPAIRMENT [None]
